FAERS Safety Report 13282237 (Version 2)
Quarter: 2017Q1

REPORT INFORMATION
  Report Type: Spontaneous
  Country: US (occurrence: US)
  Receive Date: 20170301
  Receipt Date: 20170321
  Transmission Date: 20170428
  Serious: No
  Sender: FDA-Public Use
  Company Number: ALCN2017US001683

PATIENT
  Age: 66 Year
  Sex: Female
  Weight: 61.22 kg

DRUGS (3)
  1. ALPHAGAN P [Concomitant]
     Active Substance: BRIMONIDINE TARTRATE
     Indication: INTRAOCULAR PRESSURE INCREASED
     Dosage: 1 GTT, BID
     Route: 047
  2. LATANOPROST. [Suspect]
     Active Substance: LATANOPROST
     Indication: INTRAOCULAR PRESSURE INCREASED
     Dosage: 1 GTT, QHS
     Route: 047
     Dates: start: 201701, end: 20170227
  3. LATANOPROST. [Suspect]
     Active Substance: LATANOPROST
     Dosage: 1 GTT, QHS
     Route: 047

REACTIONS (3)
  - Myalgia [Not Recovered/Not Resolved]
  - Arthralgia [Not Recovered/Not Resolved]
  - Pain in extremity [Not Recovered/Not Resolved]

NARRATIVE: CASE EVENT DATE: 20170223
